FAERS Safety Report 6373573-X (Version None)
Quarter: 2009Q3

REPORT INFORMATION
  Report Type: 
  Country: None (occurrence: None)
  Receive Date: 20090924
  Receipt Date: 20090303
  Transmission Date: 20100115
  Serious: No
  Sender: FDA-Public Use
  Company Number: US-ASTRAZENECA-2009UW05647

PATIENT
  Age: 28 Year
  Sex: Male

DRUGS (3)
  1. SEROQUEL [Suspect]
     Route: 048
  2. TRAZODONE HCL [Concomitant]
  3. PAXIL [Concomitant]

REACTIONS (1)
  - RAPID EYE MOVEMENTS SLEEP ABNORMAL [None]
